FAERS Safety Report 25443221 (Version 2)
Quarter: 2025Q2

REPORT INFORMATION
  Report Type: Spontaneous
  Country: GB (occurrence: GB)
  Receive Date: 20250617
  Receipt Date: 20250628
  Transmission Date: 20250717
  Serious: Yes (Life-Threatening, Hospitalization, Other)
  Sender: REGENERON
  Company Number: GB-SA-2025SA165288

PATIENT
  Age: 81 Year
  Sex: Female

DRUGS (1)
  1. PRALUENT [Suspect]
     Active Substance: ALIROCUMAB
     Indication: Type IIa hyperlipidaemia
     Dosage: 150 MG, QOW, SOLUTION FOR INJECTION
     Route: 058

REACTIONS (6)
  - Hospitalisation [Not Recovered/Not Resolved]
  - Hip fracture [Unknown]
  - Dyspnoea [Unknown]
  - Dizziness [Unknown]
  - Heart rate decreased [Unknown]
  - Fall [Unknown]
